FAERS Safety Report 14173662 (Version 2)
Quarter: 2019Q2

REPORT INFORMATION
  Report Type: Spontaneous
  Country: US (occurrence: US)
  Receive Date: 20171109
  Receipt Date: 20190620
  Transmission Date: 20190711
  Serious: No
  Sender: FDA-Public Use
  Company Number: US-PFIZER INC-2017483824

PATIENT
  Age: 78 Year
  Sex: Female

DRUGS (2)
  1. XELJANZ XR [Suspect]
     Active Substance: TOFACITINIB CITRATE
     Indication: RHEUMATOID ARTHRITIS
     Dosage: 11 MG, DAILY
     Route: 048
     Dates: start: 20171011
  2. FORTEO [Concomitant]
     Active Substance: TERIPARATIDE
     Dosage: UNK

REACTIONS (2)
  - Infection [Unknown]
  - Diarrhoea [Recovering/Resolving]
